FAERS Safety Report 21979328 (Version 1)
Quarter: 2023Q1

REPORT INFORMATION
  Report Type: Spontaneous
  Country: CO (occurrence: CO)
  Receive Date: 20230210
  Receipt Date: 20230210
  Transmission Date: 20230417
  Serious: Yes (Other)
  Sender: FDA-Public Use
  Company Number: CO-AMGEN-COLSP2022044338

PATIENT
  Age: 70 Year
  Sex: Male
  Weight: 98 kg

DRUGS (25)
  1. MVASI [Suspect]
     Active Substance: BEVACIZUMAB-AWWB
     Indication: Lung adenocarcinoma
     Dosage: 503.5 MILLIGRAM, Q2WK
     Route: 042
     Dates: start: 20210815
  2. MVASI [Suspect]
     Active Substance: BEVACIZUMAB-AWWB
     Indication: Adenocarcinoma of colon
  3. MVASI [Suspect]
     Active Substance: BEVACIZUMAB-AWWB
     Indication: Hepatic cancer
  4. NEULASTA [Suspect]
     Active Substance: PEGFILGRASTIM
     Indication: Adenocarcinoma of colon
     Dosage: 6 MILLIGRAM, Q2WK
     Route: 058
     Dates: start: 20220815
  5. NEULASTA [Suspect]
     Active Substance: PEGFILGRASTIM
     Indication: Lung adenocarcinoma
  6. NEULASTA [Suspect]
     Active Substance: PEGFILGRASTIM
     Indication: Hepatic cancer
  7. ONDANSETRON [Concomitant]
     Active Substance: ONDANSETRON
     Indication: Adenocarcinoma of colon
     Dosage: 16 MILLIGRAM, Q2WK
     Route: 042
     Dates: start: 20210815
  8. ONDANSETRON [Concomitant]
     Active Substance: ONDANSETRON
     Indication: Lung adenocarcinoma
  9. ONDANSETRON [Concomitant]
     Active Substance: ONDANSETRON
     Indication: Hepatic cancer
  10. LEUCOVORIN CALCIUM [Concomitant]
     Active Substance: LEUCOVORIN CALCIUM
     Indication: Adenocarcinoma of colon
     Dosage: 900 MILLIGRAM, Q2WK
     Route: 042
     Dates: start: 20210815
  11. LEUCOVORIN CALCIUM [Concomitant]
     Active Substance: LEUCOVORIN CALCIUM
     Indication: Lung adenocarcinoma
  12. LEUCOVORIN CALCIUM [Concomitant]
     Active Substance: LEUCOVORIN CALCIUM
     Indication: Hepatic cancer
  13. DEXAMETHASONE PHOSPHATE [Concomitant]
     Active Substance: DEXAMETHASONE PHOSPHATE
     Indication: Adenocarcinoma of colon
     Dosage: 16 MILLIGRAM, Q2WK
     Route: 042
     Dates: start: 20210815
  14. DEXAMETHASONE PHOSPHATE [Concomitant]
     Active Substance: DEXAMETHASONE PHOSPHATE
     Indication: Lung adenocarcinoma
  15. DEXAMETHASONE PHOSPHATE [Concomitant]
     Active Substance: DEXAMETHASONE PHOSPHATE
     Indication: Hepatic cancer
  16. FLUOROURACIL [Concomitant]
     Active Substance: FLUOROURACIL
     Indication: Adenocarcinoma of colon
     Dosage: 900 MILLIGRAM, Q2WK
     Route: 042
     Dates: start: 20210815
  17. FLUOROURACIL [Concomitant]
     Active Substance: FLUOROURACIL
     Indication: Lung adenocarcinoma
  18. FLUOROURACIL [Concomitant]
     Active Substance: FLUOROURACIL
     Indication: Hepatic cancer
  19. FOSAPREPITANT [Concomitant]
     Active Substance: FOSAPREPITANT
     Indication: Adenocarcinoma of colon
     Dosage: 150 MILLIGRAM, Q2WK
     Route: 042
     Dates: start: 20210815
  20. FOSAPREPITANT [Concomitant]
     Active Substance: FOSAPREPITANT
     Indication: Lung adenocarcinoma
  21. FOSAPREPITANT [Concomitant]
     Active Substance: FOSAPREPITANT
     Indication: Hepatic cancer
  22. OXALIPLATIN [Concomitant]
     Active Substance: OXALIPLATIN
     Indication: Adenocarcinoma of colon
     Dosage: 187.15 MILLIGRAM, Q2WK
     Route: 042
     Dates: start: 20210815
  23. OXALIPLATIN [Concomitant]
     Active Substance: OXALIPLATIN
     Indication: Lung adenocarcinoma
  24. OXALIPLATIN [Concomitant]
     Active Substance: OXALIPLATIN
     Indication: Hepatic cancer
  25. FLUOROURACIL\LEUCOVORIN CALCIUM\OXALIPLATIN [Concomitant]
     Active Substance: FLUOROURACIL\LEUCOVORIN CALCIUM\OXALIPLATIN
     Dosage: UNK
     Dates: start: 20210815

REACTIONS (4)
  - Neuropathy peripheral [Not Recovered/Not Resolved]
  - Herpes zoster [Recovered/Resolved]
  - Weight increased [Unknown]
  - Diarrhoea [Recovering/Resolving]

NARRATIVE: CASE EVENT DATE: 20220123
